FAERS Safety Report 23350029 (Version 2)
Quarter: 2024Q3

REPORT INFORMATION
  Report Type: Spontaneous
  Country: US (occurrence: US)
  Receive Date: 20231229
  Receipt Date: 20240902
  Transmission Date: 20241017
  Serious: No
  Sender: ASTELLAS
  Company Number: US-ASTELLAS-2023US027703

PATIENT
  Age: 71 Year
  Sex: Male
  Weight: 84.9 kg

DRUGS (28)
  1. PADCEV [Suspect]
     Active Substance: ENFORTUMAB VEDOTIN-EJFV
     Indication: Metastatic carcinoma of the bladder
     Dosage: UNK UNK, UNKNOWN FREQ.
     Route: 065
     Dates: start: 202309
  2. PEMBROLIZUMAB [Suspect]
     Active Substance: PEMBROLIZUMAB
     Indication: Product used for unknown indication
     Dosage: UNK, UNKNOWN FREQ.
     Route: 065
     Dates: start: 202108
  3. PEMBROLIZUMAB [Suspect]
     Active Substance: PEMBROLIZUMAB
     Dosage: UNK UNK, UNKNOWN FREQ.
     Route: 065
     Dates: start: 202109
  4. PEMBROLIZUMAB [Suspect]
     Active Substance: PEMBROLIZUMAB
     Dosage: UNK UNK, UNKNOWN FREQ.
     Route: 065
     Dates: start: 202112
  5. ACETAMINOPHEN [Concomitant]
     Active Substance: ACETAMINOPHEN
     Indication: Pain
     Dosage: 500 MG, AS NEEDED
     Route: 048
  6. ACETAMINOPHEN [Concomitant]
     Active Substance: ACETAMINOPHEN
     Dosage: 2 DF (325MG), EVERY 6 HOURS
     Route: 048
  7. TROSPIUM [Concomitant]
     Active Substance: TROSPIUM
     Indication: Product used for unknown indication
     Dosage: 20 MG, ONCE DAILY
     Route: 048
  8. TRIAMCINOLONE [Concomitant]
     Active Substance: TRIAMCINOLONE
     Indication: Rash
     Dosage: 1 APPLICATION, TWICE DAILY, PRN
     Route: 061
  9. TAMSULOSIN [Concomitant]
     Active Substance: TAMSULOSIN
     Indication: Product used for unknown indication
     Dosage: 0.4 MG, ONCE DAILY
     Route: 048
  10. SIMVASTATIN [Concomitant]
     Active Substance: SIMVASTATIN
     Indication: Product used for unknown indication
     Dosage: 40 MG, ONCE DAILY (EVERY BEDTIME)
     Route: 048
  11. OXYCODONE [Concomitant]
     Active Substance: OXYCODONE
     Indication: Pain
     Dosage: 5 MG, EVERY 6 HOURS, PRN
     Route: 048
  12. ACETAMINOPHEN\HYDROCODONE [Concomitant]
     Active Substance: ACETAMINOPHEN\HYDROCODONE
     Indication: Product used for unknown indication
     Dosage: 1 DF, OTHER (EVERY 4 HOURS)
     Route: 048
  13. Advil PM [Concomitant]
     Indication: Product used for unknown indication
     Dosage: 2 DF, ONCE DAILY
     Route: 048
  14. ASPIRIN [Concomitant]
     Active Substance: ASPIRIN
     Indication: Pain
     Dosage: 325 MG, OTHER (EVERY 4 HOURS, PRN)
     Route: 048
  15. BASAGLAR KWIKPEN [Concomitant]
     Active Substance: INSULIN GLARGINE
     Indication: Product used for unknown indication
     Dosage: UNK UNK, TWICE DAILY (7AM AND 11PM)
     Route: 058
  16. CLOTRIMAZOLE [Concomitant]
     Active Substance: CLOTRIMAZOLE
     Indication: Product used for unknown indication
     Dosage: 1 DF, TWICE DAILY
     Route: 061
  17. OXYBUTYNIN [Concomitant]
     Active Substance: OXYBUTYNIN\OXYBUTYNIN CHLORIDE
     Indication: Bladder spasm
     Dosage: 5 MG, THRICE DAILY (PRN)
     Route: 048
  18. OXYBUTYNIN [Concomitant]
     Active Substance: OXYBUTYNIN\OXYBUTYNIN CHLORIDE
     Indication: Urinary tract discomfort
  19. OMEPRAZOLE [Concomitant]
     Active Substance: OMEPRAZOLE
     Indication: Product used for unknown indication
     Dosage: 20 MG, ONCE DAILY
     Route: 048
  20. ONDANSETRON [Concomitant]
     Active Substance: ONDANSETRON
     Indication: Product used for unknown indication
     Dosage: 4 MG, EVERY 8 HOURS (SL) (AS NEEDED)
     Route: 048
  21. ONDANSETRON [Concomitant]
     Active Substance: ONDANSETRON
     Indication: Product used for unknown indication
     Dosage: 8 MG, EVERY 8 HOURS (AS NEEDED)
     Route: 048
  22. LEVOTHYROXINE [Concomitant]
     Active Substance: LEVOTHYROXINE\LEVOTHYROXINE SODIUM
     Indication: Product used for unknown indication
     Dosage: 0.15 MG, ONCE DAILY
     Route: 048
  23. KETOCONAZOLE [Concomitant]
     Active Substance: KETOCONAZOLE
     Indication: Fungal skin infection
     Dosage: 1 DF, TWICE DAILY
     Route: 061
  24. IBUPROFEN [Concomitant]
     Active Substance: IBUPROFEN
     Indication: Product used for unknown indication
     Dosage: 200 MG, EVERY 6 HOURS (AS NEEDED)
     Route: 048
  25. HYDROXYCHLOROQUINE [Concomitant]
     Active Substance: HYDROXYCHLOROQUINE
     Indication: Product used for unknown indication
     Dosage: 2 DF, ONCE DAILY
     Route: 048
  26. HUMALOG [Concomitant]
     Active Substance: INSULIN LISPRO
     Indication: Product used for unknown indication
     Dosage: 100 UNITS/ML, 4 TIMES DAILY (WITH MEALS AND AT BEDTIME)
     Route: 058
  27. GABAPENTIN [Concomitant]
     Active Substance: GABAPENTIN
     Indication: Product used for unknown indication
     Dosage: 300 MG, TWICE DAILY
     Route: 048
  28. DESONIDE [Concomitant]
     Active Substance: DESONIDE
     Indication: Musculoskeletal discomfort
     Dosage: 1 DF, TWICE DAILY
     Route: 061

REACTIONS (3)
  - Rash pruritic [Unknown]
  - Rash erythematous [Unknown]
  - Fatigue [Unknown]
